FAERS Safety Report 7162646-X (Version None)
Quarter: 2010Q4

REPORT INFORMATION
  Report Type: 
  Country: None (occurrence: None)
  Receive Date: 20101215
  Receipt Date: 20101207
  Transmission Date: 20110411
  Serious: Yes (Death)
  Sender: FDA-Public Use
  Company Number: US-AMGEN-KDL442110

PATIENT

DRUGS (12)
  1. PROCRIT [Suspect]
     Indication: RENAL FAILURE CHRONIC
     Dosage: 40000 IU, QWK
     Route: 058
     Dates: start: 20100623, end: 20100720
  2. METOPROLOL [Concomitant]
  3. FUROSEMIDE [Concomitant]
     Dosage: 40 MG, UNK
  4. GLIPIZIDE [Concomitant]
     Dosage: 2.5 MG, UNK
  5. ACTOS [Concomitant]
     Dosage: 20 MG, UNK
  6. DILTIA [Concomitant]
     Dosage: 120 MG, UNK
  7. LOVASTATIN [Concomitant]
     Dosage: 40 MG, UNK
  8. HYDRALAZINE [Concomitant]
     Dosage: 50 MG, TID
  9. TERAZOSIN HCL [Concomitant]
     Dosage: 20 MG, BID
  10. RANITIDINE [Concomitant]
     Dosage: 75 MG, UNK
  11. SIMBICORT TURBUHALER [Concomitant]
     Dosage: UNK UNK, BID
  12. MICRO-K [Concomitant]
     Dosage: 10 MEQ, BID

REACTIONS (1)
  - CARDIAC ARREST [None]
